FAERS Safety Report 13680898 (Version 1)
Quarter: 2017Q2

REPORT INFORMATION
  Report Type: Spontaneous
  Country: US (occurrence: US)
  Receive Date: 20170623
  Receipt Date: 20170623
  Transmission Date: 20170830
  Serious: Yes (Death)
  Sender: FDA-Public Use
  Company Number: US-ADIENNEP-2017AD000168

PATIENT
  Sex: Male

DRUGS (2)
  1. THIOTEPA. [Suspect]
     Active Substance: THIOTEPA
     Indication: GERM CELL CANCER
     Dosage: 1200 MG/M2
  2. ETOPOSIDE. [Suspect]
     Active Substance: ETOPOSIDE
     Indication: GERM CELL CANCER
     Dosage: 1500 MG/M2
     Route: 048

REACTIONS (2)
  - Neurological decompensation [Fatal]
  - Cognitive disorder [Fatal]
